FAERS Safety Report 9392535 (Version 1)
Quarter: 2013Q3

REPORT INFORMATION
  Report Type: Spontaneous
  Country: US (occurrence: US)
  Receive Date: 20130710
  Receipt Date: 20130710
  Transmission Date: 20140515
  Serious: No
  Sender: FDA-Public Use
  Company Number: US-BIOGENIDEC-2013BI060833

PATIENT
  Sex: Female

DRUGS (4)
  1. TYSABRI [Suspect]
     Indication: MULTIPLE SCLEROSIS
     Route: 042
     Dates: start: 20130222
  2. KLONOPIN [Concomitant]
     Indication: DEPRESSION
     Dates: start: 2008
  3. ALPRAZOLAM [Concomitant]
     Indication: ANXIETY
  4. COUMADIN [Concomitant]
     Indication: PRODUCT USED FOR UNKNOWN INDICATION

REACTIONS (2)
  - Major depression [Recovered/Resolved]
  - International normalised ratio abnormal [Unknown]
